FAERS Safety Report 4710772-4 (Version None)
Quarter: 2005Q3

REPORT INFORMATION
  Report Type: 
  Country: None (occurrence: None)
  Receive Date: 20050707
  Receipt Date: 20050620
  Transmission Date: 20060218
  Serious: Yes (Disabling, Other)
  Sender: FDA-Public Use
  Company Number: FR_050406319

PATIENT
  Age: 60 Year
  Sex: Male

DRUGS (2)
  1. GEMZAR [Suspect]
     Indication: PANCREATIC CARCINOMA
     Dates: start: 20040101, end: 20040101
  2. RADIATION THERAPY [Concomitant]

REACTIONS (2)
  - PULMONARY FIBROSIS [None]
  - RADIATION INJURY [None]
